FAERS Safety Report 5268157-0 (Version None)
Quarter: 2007Q1

REPORT INFORMATION
  Report Type: 
  Country: None (occurrence: None)
  Receive Date: 20070314
  Receipt Date: 20070314
  Transmission Date: 20070707
  Serious: Yes (Death, Hospitalization)
  Sender: FDA-Public Use
  Company Number: None

PATIENT
  Sex: Female
  Weight: 21 kg

DRUGS (12)
  1. PEG-L-ASPARAGINASE (K-H) [Suspect]
     Dosage: 3575 IU
  2. VINCRISTINE SULFATE [Suspect]
     Dosage: 3.3 MG
  3. DEXAMETHASONE [Suspect]
     Dosage: 147 MG
  4. AMOXICILLIN AND CLAVULANIC ACID [Concomitant]
  5. CHLORPROMAZINE [Concomitant]
  6. DICLOFENAC SODIUM [Concomitant]
  7. FLUCONAZOLE [Concomitant]
  8. HYOSCINE HBR HYT [Concomitant]
  9. MIDAZOLAM HCL [Concomitant]
  10. OMEPRAZOLE [Concomitant]
  11. ACETAMINOPHEN [Concomitant]
  12. SALBUTAMOL AEROSOL [Concomitant]

REACTIONS (25)
  - ABDOMINAL PAIN [None]
  - ADRENAL SUPPRESSION [None]
  - AMMONIA INCREASED [None]
  - APNOEA [None]
  - BLOOD CULTURE POSITIVE [None]
  - BLOOD OSMOLARITY DECREASED [None]
  - BONE PAIN [None]
  - BRADYCARDIA [None]
  - CARDIAC ARREST [None]
  - COAGULOPATHY [None]
  - CULTURE URINE POSITIVE [None]
  - CYTOMEGALOVIRUS TEST POSITIVE [None]
  - HAEMOGLOBIN ABNORMAL [None]
  - HEPATIC FAILURE [None]
  - HEPATIC STEATOSIS [None]
  - HEPATOMEGALY [None]
  - HYPONATRAEMIA [None]
  - KIDNEY ENLARGEMENT [None]
  - LOSS OF CONSCIOUSNESS [None]
  - MOOD ALTERED [None]
  - NEUTROPHIL COUNT DECREASED [None]
  - PLATELET COUNT DECREASED [None]
  - PNEUMONIA STREPTOCOCCAL [None]
  - TACHYPNOEA [None]
  - WHITE BLOOD CELL COUNT DECREASED [None]
